FAERS Safety Report 17099303 (Version 14)
Quarter: 2021Q2

REPORT INFORMATION
  Report Type: Spontaneous
  Country: US (occurrence: US)
  Receive Date: 20191202
  Receipt Date: 20210625
  Transmission Date: 20210716
  Serious: Yes (Hospitalization, Other)
  Sender: FDA-Public Use
  Company Number: US-PFIZER INC-2019516869

PATIENT
  Age: 48 Year
  Sex: Female
  Weight: 57 kg

DRUGS (12)
  1. PRISTIQ EXTENDED?RELEASE [Suspect]
     Active Substance: DESVENLAFAXINE SUCCINATE
     Indication: STRESS
  2. PRISTIQ EXTENDED?RELEASE [Suspect]
     Active Substance: DESVENLAFAXINE SUCCINATE
     Indication: DEPRESSION
  3. TOPIRAMATE. [Concomitant]
     Active Substance: TOPIRAMATE
     Dosage: UNK [} 100 MG}1X PERDAY]
  4. PRISTIQ EXTENDED?RELEASE [Suspect]
     Active Substance: DESVENLAFAXINE SUCCINATE
     Indication: ANXIETY
     Dosage: 100 MG, 1X/DAY
     Dates: start: 2001
  5. ASPIRIN BAYER [Concomitant]
     Active Substance: ASPIRIN
     Dosage: UNK, DAILY [}1 81 MG]
  6. SIMVASTATIN. [Concomitant]
     Active Substance: SIMVASTATIN
     Dosage: UNK [} 20 MG }1X PER DAY]
  7. CENTRUM WOMEN [Concomitant]
     Active Substance: VITAMINS
     Dosage: UNK, DAILY [1]
  8. PRISTIQ EXTENDED?RELEASE [Suspect]
     Active Substance: DESVENLAFAXINE SUCCINATE
     Indication: MULTIPLE SCLEROSIS
     Dosage: 100 MG, 1X/DAY (EVERY MORNING)
  9. HYDROCHLOROTHIAZIDE. [Concomitant]
     Active Substance: HYDROCHLOROTHIAZIDE
     Dosage: UNK [}125MG}1XDAILY]
  10. VALSARTAN. [Concomitant]
     Active Substance: VALSARTAN
     Dosage: UNK [}160 MG}1XDAILY]
  11. PANTOPRAZOLE SODIUM. [Concomitant]
     Active Substance: PANTOPRAZOLE SODIUM
     Dosage: UNK [}40 MG }1XDAILY]
  12. GILENYA [Concomitant]
     Active Substance: FINGOLIMOD HYDROCHLORIDE
     Dosage: 0.5 MG, UNK [} 1XPERDAY]

REACTIONS (11)
  - Blood pressure increased [Unknown]
  - Gastrointestinal disorder [Unknown]
  - Product dose omission issue [Unknown]
  - Blood pressure fluctuation [Unknown]
  - Anaemia [Unknown]
  - Renal failure [Unknown]
  - Illness [Not Recovered/Not Resolved]
  - Gait disturbance [Not Recovered/Not Resolved]
  - Mental impairment [Recovered/Resolved]
  - Feeling abnormal [Unknown]
  - Intracranial aneurysm [Unknown]
